FAERS Safety Report 9572851 (Version 2)
Quarter: 2013Q4

REPORT INFORMATION
  Report Type: Spontaneous
  Country: US (occurrence: US)
  Receive Date: 20131001
  Receipt Date: 20131001
  Transmission Date: 20140711
  Serious: Yes (Hospitalization, Other)
  Sender: FDA-Public Use
  Company Number: US-NAPPMUNDI-USA-2012-0081796

PATIENT
  Sex: Male

DRUGS (2)
  1. BUTRANS [Suspect]
     Indication: ANALGESIC THERAPY
     Dosage: UNK
     Route: 062
     Dates: start: 201201, end: 201201
  2. HYDROCODONE /00060002/ [Interacting]
     Indication: ANALGESIC THERAPY

REACTIONS (2)
  - Overdose [Recovered/Resolved]
  - Drug interaction [Unknown]
